FAERS Safety Report 4540351-3 (Version None)
Quarter: 2004Q4

REPORT INFORMATION
  Report Type: 
  Country: None (occurrence: None)
  Receive Date: 20041228
  Receipt Date: 20041228
  Transmission Date: 20050328
  Serious: Yes (Other)
  Sender: FDA-Public Use
  Company Number: None

PATIENT
  Sex: Male
  Weight: 86.1834 kg

DRUGS (2)
  1. CEPHALEXIN [Suspect]
     Indication: SKIN INFECTION
     Dosage: 4      DAY    ORAL
     Route: 048
     Dates: start: 20041215, end: 20041215
  2. CRESTOR [Concomitant]

REACTIONS (5)
  - FEELING ABNORMAL [None]
  - HYPERHIDROSIS [None]
  - PALLOR [None]
  - PHARMACEUTICAL PRODUCT COMPLAINT [None]
  - VOMITING [None]
